FAERS Safety Report 23021887 (Version 1)
Quarter: 2023Q4

REPORT INFORMATION
  Report Type: Spontaneous
  Country: NL (occurrence: NL)
  Receive Date: 20231003
  Receipt Date: 20231003
  Transmission Date: 20240110
  Serious: Yes (Life-Threatening)
  Sender: FDA-Public Use
  Company Number: NL-LRB-00885882

PATIENT
  Sex: Female
  Weight: 35 kg

DRUGS (2)
  1. SERTRALINE [Suspect]
     Active Substance: SERTRALINE HYDROCHLORIDE
     Indication: Anxiety
     Dosage: 50 MILLIGRAM, DAILY, VARYING FROM 50 TO 100 MG ONCE PER DAY
     Route: 065
     Dates: start: 20170101, end: 20230418
  2. PANTOPRAZOLE [Concomitant]
     Active Substance: PANTOPRAZOLE
     Indication: Product used for unknown indication
     Dosage: 40 MILLIGRAM, GASTRO-RESISTANT TABLET
     Route: 065

REACTIONS (2)
  - Dyspepsia [Recovered/Resolved]
  - Weight decreased [Recovered/Resolved]
